FAERS Safety Report 22176276 (Version 1)
Quarter: 2023Q2

REPORT INFORMATION
  Report Type: Spontaneous
  Country: CA (occurrence: CA)
  Receive Date: 20230405
  Receipt Date: 20230405
  Transmission Date: 20230721
  Serious: Yes (Hospitalization)
  Sender: FDA-Public Use
  Company Number: CA-BAYER-2023A044528

PATIENT
  Age: 38 Year
  Sex: Male

DRUGS (3)
  1. GADOBUTROL [Suspect]
     Active Substance: GADOBUTROL
     Indication: Magnetic resonance imaging heart
     Dosage: UNK, ONCE
     Route: 042
  2. SODIUM [Concomitant]
     Active Substance: SODIUM
  3. CHLORIDE ION [Concomitant]
     Active Substance: CHLORIDE ION

REACTIONS (4)
  - Vomiting [Unknown]
  - Dysphagia [Unknown]
  - Urticaria [Unknown]
  - Anaphylactic reaction [Unknown]
